FAERS Safety Report 12640519 (Version 1)
Quarter: 2016Q3

REPORT INFORMATION
  Report Type: Spontaneous
  Country: US (occurrence: None)
  Receive Date: 20160809
  Receipt Date: 20160809
  Transmission Date: 20161109
  Serious: Yes (Life-Threatening, Hospitalization)
  Sender: FDA-Public Use
  Company Number: None

PATIENT
  Age: 54 Year
  Sex: Female
  Weight: 84 kg

DRUGS (1)
  1. WARFARIN [Suspect]
     Active Substance: WARFARIN

REACTIONS (7)
  - Anaemia [None]
  - Ecchymosis [None]
  - Disseminated intravascular coagulation [None]
  - Hypotension [None]
  - Haematoma [None]
  - Haemoptysis [None]
  - Respiratory failure [None]

NARRATIVE: CASE EVENT DATE: 20150810
